FAERS Safety Report 7058245-0 (Version None)
Quarter: 2010Q4

REPORT INFORMATION
  Report Type: 
  Country: None (occurrence: None)
  Receive Date: 20101022
  Receipt Date: 20101015
  Transmission Date: 20110411
  Serious: No
  Sender: FDA-Public Use
  Company Number: US-PFIZER INC-2010128383

PATIENT
  Sex: Female
  Weight: 63.492 kg

DRUGS (1)
  1. ESTRING [Suspect]
     Indication: VULVOVAGINAL DRYNESS
     Dosage: 2 MG, ONCE IN THREE MONTHS
     Route: 067

REACTIONS (1)
  - DRUG INEFFECTIVE [None]
